FAERS Safety Report 9321602 (Version 1)
Quarter: 2013Q2

REPORT INFORMATION
  Report Type: Spontaneous
  Country: US (occurrence: US)
  Receive Date: 20130531
  Receipt Date: 20130531
  Transmission Date: 20140414
  Serious: No
  Sender: FDA-Public Use
  Company Number: US-PFIZER INC-2013166112

PATIENT
  Sex: Male

DRUGS (2)
  1. NEURONTIN [Suspect]
     Dosage: 1800 MG, UNK
  2. LYRICA [Suspect]
     Indication: BURNING SENSATION
     Dosage: 300 MG, UNK

REACTIONS (1)
  - Drug ineffective [Unknown]
